FAERS Safety Report 25812690 (Version 1)
Quarter: 2025Q3

REPORT INFORMATION
  Report Type: Spontaneous
  Country: EG (occurrence: EG)
  Receive Date: 20250917
  Receipt Date: 20250917
  Transmission Date: 20251020
  Serious: Yes (Hospitalization)
  Sender: NOVARTIS
  Company Number: EG-002147023-NVSC2025EG141906

PATIENT
  Age: 39 Year
  Sex: Male

DRUGS (2)
  1. CYCLOSPORINE [Suspect]
     Active Substance: CYCLOSPORINE
     Indication: Renal transplant
     Route: 048
     Dates: start: 202410
  2. CELLCEPT [Suspect]
     Active Substance: MYCOPHENOLATE MOFETIL
     Indication: Renal transplant
     Route: 048
     Dates: start: 202410

REACTIONS (5)
  - Diarrhoea [Recovered/Resolved]
  - Blood creatinine abnormal [Recovered/Resolved]
  - Blood potassium abnormal [Recovered/Resolved]
  - Acute kidney injury [Recovered/Resolved]
  - Kidney transplant rejection [Recovered/Resolved]

NARRATIVE: CASE EVENT DATE: 20250710
